FAERS Safety Report 9173761 (Version 1)
Quarter: 2013Q1

REPORT INFORMATION
  Report Type: Report from Study
  Country: US (occurrence: US)
  Receive Date: 20130320
  Receipt Date: 20130320
  Transmission Date: 20140127
  Serious: Yes (Hospitalization)
  Sender: FDA-Public Use
  Company Number: US-VERTEX PHARMACEUTICALS INC.-2013-003677

PATIENT
  Age: 52 Year
  Sex: Male
  Weight: 124 kg

DRUGS (3)
  1. VX-950 (TELAPREVIR) [Suspect]
     Indication: HEPATITIS C
     Dosage: 750 MG, TID
     Route: 048
     Dates: start: 2013, end: 20130314
  2. PEGASYS [Suspect]
     Indication: HEPATITIS C
     Dosage: 180 ?G, QW
     Route: 058
     Dates: start: 20130225, end: 20130314
  3. RIBAPAK [Suspect]
     Indication: HEPATITIS C
     Dosage: 600 MG, BID
     Route: 048
     Dates: start: 20130225, end: 20130314

REACTIONS (5)
  - Hypersensitivity [Unknown]
  - Headache [Recovered/Resolved]
  - Loss of consciousness [Recovered/Resolved]
  - Swelling face [Recovered/Resolved]
  - Rash generalised [Recovered/Resolved]
